FAERS Safety Report 24331992 (Version 1)
Quarter: 2024Q3

REPORT INFORMATION
  Report Type: Spontaneous
  Country: JP (occurrence: JP)
  Receive Date: 20240918
  Receipt Date: 20240918
  Transmission Date: 20241017
  Serious: Yes (Hospitalization, Other)
  Sender: BRISTOL MYERS SQUIBB
  Company Number: JP-BRISTOL-MYERS SQUIBB COMPANY-2024-145784

PATIENT
  Age: 84 Year
  Sex: Male

DRUGS (1)
  1. REBLOZYL [Suspect]
     Active Substance: LUSPATERCEPT-AAMT
     Indication: Myelodysplastic syndrome
     Dosage: DAYS OF ADMINISTRATION: 2
     Route: 058
     Dates: start: 20240703

REACTIONS (4)
  - Pneumonia klebsiella [Recovering/Resolving]
  - Pulmonary embolism [Recovering/Resolving]
  - Osteoporosis [Unknown]
  - Lumbar vertebral fracture [Unknown]

NARRATIVE: CASE EVENT DATE: 20240724
